APPROVED DRUG PRODUCT: ALMOTRIPTAN MALATE
Active Ingredient: ALMOTRIPTAN MALATE
Strength: EQ 12.5MG BASE
Dosage Form/Route: TABLET;ORAL
Application: A205523 | Product #002 | TE Code: AB
Applicant: AJANTA PHARMA LTD
Approved: Mar 3, 2016 | RLD: No | RS: Yes | Type: RX